FAERS Safety Report 17994392 (Version 1)
Quarter: 2020Q3

REPORT INFORMATION
  Report Type: Spontaneous
  Country: US (occurrence: US)
  Receive Date: 20200708
  Receipt Date: 20200708
  Transmission Date: 20201103
  Serious: No
  Sender: FDA-Public Use
  Company Number: US-LUPIN PHARMACEUTICALS INC.-2019-05132

PATIENT
  Age: 65 Year
  Sex: Female
  Weight: 58.05 kg

DRUGS (1)
  1. BIMATOPROST OPHTHALMIC SOLUTION, 0.03% [Suspect]
     Active Substance: BIMATOPROST
     Indication: PRODUCT USED FOR UNKNOWN INDICATION
     Dosage: UNK UNK, QD
     Route: 047
     Dates: start: 20190501

REACTIONS (5)
  - Product contamination physical [Unknown]
  - Wrong technique in product usage process [Unknown]
  - Lacrimation increased [Recovered/Resolved]
  - Eye irritation [Recovered/Resolved]
  - Product container seal issue [None]

NARRATIVE: CASE EVENT DATE: 20190726
